FAERS Safety Report 8809127 (Version 1)
Quarter: 2012Q4

REPORT INFORMATION
  Report Type: 
  Country: JP (occurrence: JP)
  Receive Date: 20120926
  Receipt Date: 20120926
  Transmission Date: 20130627
  Serious: Yes (Death)
  Sender: FDA-Public Use
  Company Number: JP-PFIZER INC-2012219094

PATIENT
  Age: 54 Year
  Sex: Male
  Weight: 62.8 kg

DRUGS (5)
  1. SOLU-MEDROL [Suspect]
     Indication: HEPATITIS
     Dosage: 1000 mg, 1x/day
     Route: 041
     Dates: start: 20120830, end: 20120901
  2. ALDACTONE A [Suspect]
     Dosage: 25 mg, 1x/day
     Route: 048
     Dates: start: 20120814
  3. LASIX [Suspect]
     Dosage: 20 mg, 1x/day
     Route: 048
     Dates: start: 20120814
  4. BAKTAR [Suspect]
     Indication: INFECTION PROPHYLAXIS
     Dosage: 240, no unit provided, 1x/day
     Route: 048
     Dates: start: 20120823
  5. PREDONINE [Concomitant]
     Indication: HEPATITIS
     Dosage: 20 mg, 2x/day
     Route: 048
     Dates: start: 20120814

REACTIONS (2)
  - Oesophageal varices haemorrhage [Fatal]
  - Hyponatraemia [Unknown]
